FAERS Safety Report 20457915 (Version 1)
Quarter: 2022Q1

REPORT INFORMATION
  Report Type: Spontaneous
  Country: US (occurrence: US)
  Receive Date: 20220210
  Receipt Date: 20220210
  Transmission Date: 20220423
  Serious: Yes (Hospitalization, Other)
  Sender: FDA-Public Use
  Company Number: US-ASPEN-GLO2022US000118

PATIENT

DRUGS (6)
  1. LIDOCAINE HYDROCHLORIDE [Suspect]
     Active Substance: LIDOCAINE HYDROCHLORIDE
     Indication: Cancer pain
     Dosage: 1 MG/KG/HR INFUSION (ON HOSPITAL DAY 17)
     Route: 042
  2. LIDOCAINE HYDROCHLORIDE [Suspect]
     Active Substance: LIDOCAINE HYDROCHLORIDE
     Dosage: 2 MG/KG (LOADING DOSE-INFUSION)
     Route: 042
  3. LIDOCAINE HYDROCHLORIDE [Suspect]
     Active Substance: LIDOCAINE HYDROCHLORIDE
     Dosage: TITRATED TO A MAXIMUMOF 1.6MG/KG/HOUR ON HOSPITAL DAY 17
     Route: 042
  4. LIDOCAINE HYDROCHLORIDE [Suspect]
     Active Substance: LIDOCAINE HYDROCHLORIDE
     Dosage: 1 MG/KG/HR A CONTINUOUS INFUSION
     Route: 042
  5. DEXAMETHASONE [Suspect]
     Active Substance: DEXAMETHASONE
     Indication: Spinal cord compression
     Dosage: 10 MG, 1 DOSE 8 HOURS(ON HD 25, DEXAMETHASONE WAS INCREASED TO 10 MG IV )
     Route: 042
  6. DEXAMETHASONE [Suspect]
     Active Substance: DEXAMETHASONE
     Dosage: 10 MG, 1 DOSE 24 HOURS (EVERY MORNING WAS STARTED ON HD 20)
     Route: 042

REACTIONS (5)
  - Off label use [Unknown]
  - Hoigne^s syndrome [Recovering/Resolving]
  - Hypoaesthesia oral [Recovering/Resolving]
  - Delirium [Recovering/Resolving]
  - Anxiety [Recovering/Resolving]
